FAERS Safety Report 13072343 (Version 3)
Quarter: 2017Q1

REPORT INFORMATION
  Report Type: Spontaneous
  Country: US (occurrence: US)
  Receive Date: 20161229
  Receipt Date: 20170109
  Transmission Date: 20170428
  Serious: No
  Sender: FDA-Public Use
  Company Number: US-009507513-1612USA011441

PATIENT
  Age: 68 Year
  Sex: Female

DRUGS (4)
  1. ASMANEX HFA [Suspect]
     Active Substance: MOMETASONE FUROATE
     Indication: ASTHMA
  2. OXYGEN. [Concomitant]
     Active Substance: OXYGEN
     Dosage: UNK
  3. VENTOLIN [Concomitant]
     Active Substance: ALBUTEROL SULFATE
     Dosage: UNK
  4. ASMANEX HFA [Suspect]
     Active Substance: MOMETASONE FUROATE
     Indication: CHRONIC OBSTRUCTIVE PULMONARY DISEASE
     Dosage: 400 MICROGRAM, BID (200 MCG/2 PUFFS TWICE A DAY)
     Route: 055
     Dates: start: 201605

REACTIONS (5)
  - Dyspnoea [Not Recovered/Not Resolved]
  - Incorrect dose administered [Unknown]
  - Wheezing [Unknown]
  - Product use issue [Unknown]
  - Product quality issue [Unknown]

NARRATIVE: CASE EVENT DATE: 201605
